FAERS Safety Report 6824176-1 (Version None)
Quarter: 2010Q3

REPORT INFORMATION
  Report Type: 
  Country: None (occurrence: None)
  Receive Date: 20100708
  Receipt Date: 20061011
  Transmission Date: 20110219
  Serious: No
  Sender: FDA-Public Use
  Company Number: US-PFIZER INC-2006126491

PATIENT
  Sex: Female
  Weight: 63.96 kg

DRUGS (15)
  1. CHANTIX [Suspect]
     Indication: SMOKING CESSATION THERAPY
     Route: 048
     Dates: start: 20060927
  2. VITAMIN B COMPLEX CAP [Concomitant]
  3. VITAMIN C [Concomitant]
  4. TRUVADA [Concomitant]
  5. ACETYLSALICYLIC ACID [Concomitant]
  6. ENALAPRIL MALEATE [Concomitant]
  7. MULTI-VITAMINS [Concomitant]
  8. SUSTIVA [Concomitant]
  9. ABACAVIR [Concomitant]
  10. OSCAL [Concomitant]
  11. NIASPAN [Concomitant]
  12. TRICOR [Concomitant]
  13. NEURONTIN [Concomitant]
  14. AMBIEN [Concomitant]
  15. ANTIBIOTICS [Concomitant]
     Indication: NASOPHARYNGITIS

REACTIONS (3)
  - ASTHENIA [None]
  - COLD SWEAT [None]
  - HYPERHIDROSIS [None]
